FAERS Safety Report 15867739 (Version 1)
Quarter: 2019Q1

REPORT INFORMATION
  Report Type: Spontaneous
  Country: PT (occurrence: PT)
  Receive Date: 20190125
  Receipt Date: 20190125
  Transmission Date: 20190417
  Serious: Yes (Hospitalization)
  Sender: FDA-Public Use
  Company Number: PT-NOVAST LABORATORIES, LTD-PT-2019NOV000015

PATIENT
  Age: 55 Year
  Sex: Female

DRUGS (1)
  1. BUTALBITAL, ACETAMINOPHEN, AND CAFFEINE [Suspect]
     Active Substance: ACETAMINOPHEN\BUTALBITAL\CAFFEINE
     Indication: PAIN
     Dosage: 10 G, UNK
     Route: 048

REACTIONS (4)
  - Overdose [Unknown]
  - Kussmaul respiration [Recovering/Resolving]
  - Metabolic acidosis [Unknown]
  - Toxicity to various agents [Unknown]
